FAERS Safety Report 7371045-7 (Version None)
Quarter: 2011Q1

REPORT INFORMATION
  Report Type: 
  Country: None (occurrence: None)
  Receive Date: 20110318
  Receipt Date: 20110318
  Transmission Date: 20110831
  Serious: No
  Sender: FDA-Public Use
  Company Number: None

PATIENT
  Age: 49 Year
  Sex: Female
  Weight: 129.2752 kg

DRUGS (1)
  1. NASONEX [Suspect]
     Dosage: 1 PUFF TWICE A DAY NASAL
     Route: 045

REACTIONS (4)
  - INSOMNIA [None]
  - FLUSHING [None]
  - DYSPNOEA [None]
  - PALPITATIONS [None]
